FAERS Safety Report 12296597 (Version 2)
Quarter: 2016Q2

REPORT INFORMATION
  Report Type: Report from Study
  Country: BR (occurrence: BR)
  Receive Date: 20160422
  Receipt Date: 20160516
  Transmission Date: 20160815
  Serious: Yes (Other)
  Sender: FDA-Public Use
  Company Number: PHHY2016BR047867

PATIENT
  Sex: Female
  Weight: 55 kg

DRUGS (1)
  1. EXJADE [Suspect]
     Active Substance: DEFERASIROX
     Indication: SICKLE CELL ANAEMIA
     Dosage: 25 MG/KG, QD (3 TABLETS OF 500 MG)
     Route: 048

REACTIONS (4)
  - Renal impairment [Unknown]
  - Blindness unilateral [Unknown]
  - Cardiac disorder [Unknown]
  - Blood iron decreased [Unknown]
